FAERS Safety Report 23901916 (Version 1)
Quarter: 2024Q2

REPORT INFORMATION
  Report Type: Spontaneous
  Country: US (occurrence: None)
  Receive Date: 20240526
  Receipt Date: 20240526
  Transmission Date: 20240716
  Serious: No
  Sender: FDA-Public Use
  Company Number: US-ROCHE-3514288

PATIENT
  Sex: Female

DRUGS (1)
  1. OCREVUS [Suspect]
     Active Substance: OCRELIZUMAB
     Indication: Multiple sclerosis
     Dosage: LAST DOSE TAKEN ON 16/FEB/2024
     Route: 065
     Dates: start: 20240216

REACTIONS (2)
  - Infusion related reaction [Unknown]
  - Paraesthesia [Unknown]
